FAERS Safety Report 4703944-6 (Version None)
Quarter: 2005Q2

REPORT INFORMATION
  Report Type: 
  Country: None (occurrence: None)
  Receive Date: 20050630
  Receipt Date: 20050203
  Transmission Date: 20051028
  Serious: Yes (Hospitalization)
  Sender: FDA-Public Use
  Company Number: US-MERCK-0502USA00480

PATIENT
  Age: 62 Year
  Sex: Female
  Weight: 98 kg

DRUGS (21)
  1. VIOXX [Suspect]
     Indication: ARTHRALGIA
     Route: 048
     Dates: start: 20010401
  2. VIOXX [Suspect]
     Route: 048
     Dates: start: 20010101
  3. HUMULIN [Concomitant]
     Indication: DIABETES MELLITUS
     Route: 058
  4. GLUCOPHAGE [Concomitant]
     Indication: DIABETES MELLITUS
     Route: 048
  5. LOPRESSOR [Concomitant]
     Route: 048
  6. ACCUPRIL [Concomitant]
     Route: 048
  7. ZOCOR [Concomitant]
     Indication: HYPERTENSION
     Route: 048
  8. HYDROCHLOROTHIAZIDE [Concomitant]
     Route: 048
  9. NEXIUM [Concomitant]
     Route: 048
  10. ESTRADIOL [Concomitant]
     Route: 048
  11. ULTRAM [Concomitant]
     Route: 048
  12. ASPIRIN [Concomitant]
     Route: 048
  13. NITROGLYCERIN [Concomitant]
     Route: 065
  14. [THERAPY UNSPECIFIED] [Concomitant]
     Route: 048
  15. BEXTRA [Concomitant]
     Route: 048
  16. LIPITOR [Concomitant]
     Route: 048
  17. GEMFIBROZIL [Concomitant]
     Route: 048
  18. FLEXERIL [Concomitant]
     Route: 048
  19. GLUCOSAMINE [Concomitant]
     Route: 065
  20. PREVACID [Concomitant]
     Route: 065
  21. NITROGLYCERIN [Concomitant]
     Route: 065

REACTIONS (22)
  - ANGINA PECTORIS [None]
  - BLADDER DISORDER [None]
  - CHEST PAIN [None]
  - CORONARY ARTERY DISEASE [None]
  - DEPRESSION [None]
  - DIABETIC RETINOPATHY [None]
  - DIZZINESS [None]
  - DYSPHAGIA [None]
  - DYSPNOEA EXERTIONAL [None]
  - ELECTROCARDIOGRAM ABNORMAL [None]
  - GASTROENTERITIS [None]
  - NO THERAPEUTIC RESPONSE [None]
  - NON-CARDIAC CHEST PAIN [None]
  - POST-TRAUMATIC STRESS DISORDER [None]
  - RENAL DISORDER [None]
  - RETINAL DISORDER [None]
  - ROTATOR CUFF SYNDROME [None]
  - STOMACH DISCOMFORT [None]
  - TEMPERATURE INTOLERANCE [None]
  - UPPER RESPIRATORY TRACT INFECTION [None]
  - URINARY TRACT INFECTION [None]
  - WEIGHT INCREASED [None]
